FAERS Safety Report 8237227-7 (Version None)
Quarter: 2012Q1

REPORT INFORMATION
  Report Type: 
  Country: None (occurrence: None)
  Receive Date: 20120327
  Receipt Date: 20120315
  Transmission Date: 20120608
  Serious: Yes (Hospitalization, Other)
  Sender: FDA-Public Use
  Company Number: US-SANOFI-AVENTIS-2012SA019534

PATIENT
  Sex: Female

DRUGS (3)
  1. AMBIEN [Suspect]
     Indication: INSOMNIA
     Dates: start: 20040101
  2. SYNTHROID [Concomitant]
  3. AMBIEN CR [Suspect]
     Indication: INSOMNIA
     Route: 048

REACTIONS (8)
  - WEIGHT DECREASED [None]
  - CONDITION AGGRAVATED [None]
  - HELICOBACTER INFECTION [None]
  - DIARRHOEA [None]
  - MUSCLE ATROPHY [None]
  - RAYNAUD'S PHENOMENON [None]
  - GASTROINTESTINAL ULCER [None]
  - FIBROMYALGIA [None]
